FAERS Safety Report 6031620-9 (Version None)
Quarter: 2009Q1

REPORT INFORMATION
  Report Type: 
  Country: None (occurrence: None)
  Receive Date: 20090108
  Receipt Date: 20081231
  Transmission Date: 20090719
  Serious: Yes (Hospitalization, Other)
  Sender: FDA-Public Use
  Company Number: US-ELI_LILLY_AND_COMPANY-US200812000299

PATIENT
  Sex: Female
  Weight: 99.32 kg

DRUGS (11)
  1. BYETTA [Suspect]
     Indication: TYPE 2 DIABETES MELLITUS
     Dosage: 5 UG, 2/D
     Route: 058
     Dates: start: 20050101, end: 20050101
  2. BYETTA [Suspect]
     Dosage: 10 UG, 2/D
     Route: 058
     Dates: start: 20050101
  3. DIOVAN [Concomitant]
     Dosage: UNK, DAILY (1/D)
  4. COLCHICINE [Concomitant]
     Dosage: UNK, DAILY (1/D)
  5. POTASSIUM CHLORIDE [Concomitant]
     Dosage: UNK, DAILY (1/D)
  6. METOPROLOL [Concomitant]
     Dosage: UNK, DAILY (1/D)
  7. LASIX [Concomitant]
     Dosage: UNK, DAILY (1/D)
  8. LEVOTHYROXINE SODIUM [Concomitant]
     Dosage: UNK, DAILY (1/D)
  9. GLIMEPIRIDE [Concomitant]
     Dosage: UNK, 2/D
  10. GABAPENTIN [Concomitant]
     Dosage: UNK, 2/D
  11. ASPIRIN [Concomitant]
     Dosage: UNK, DAILY (1/D)

REACTIONS (6)
  - BILIARY COLIC [None]
  - BILIARY DYSKINESIA [None]
  - CAROTID ARTERY STENOSIS [None]
  - CATARACT [None]
  - IRRITABLE BOWEL SYNDROME [None]
  - OSTEOMYELITIS [None]
